FAERS Safety Report 12474797 (Version 1)
Quarter: 2016Q2

REPORT INFORMATION
  Report Type: Report from Study
  Country: JP (occurrence: JP)
  Receive Date: 20160617
  Receipt Date: 20160617
  Transmission Date: 20160815
  Serious: Yes (Other)
  Sender: FDA-Public Use
  Company Number: JP-BAXTER-2016BAX030607

PATIENT
  Age: 84 Year
  Sex: Female

DRUGS (12)
  1. DROLEPTAN [Concomitant]
     Active Substance: DROPERIDOL
     Indication: PROPHYLAXIS
     Route: 065
     Dates: start: 20130904, end: 20130904
  2. ULTIVA [Concomitant]
     Active Substance: REMIFENTANIL HYDROCHLORIDE
     Indication: INDUCTION OF ANAESTHESIA
     Route: 065
     Dates: start: 20130904, end: 20130904
  3. ESLAX [Concomitant]
     Active Substance: ROCURONIUM BROMIDE
     Indication: ADVERSE EVENT
     Route: 065
     Dates: start: 20130904, end: 20130904
  4. PROPOFOL. [Concomitant]
     Active Substance: PROPOFOL
     Indication: INDUCTION OF ANAESTHESIA
     Route: 065
     Dates: start: 20130904, end: 20130904
  5. ESLAX [Concomitant]
     Active Substance: ROCURONIUM BROMIDE
     Indication: MUSCLE RELAXANT THERAPY
     Route: 065
     Dates: start: 20130904, end: 20130904
  6. GASTER [Concomitant]
     Active Substance: FAMOTIDINE
     Indication: PROPHYLAXIS
     Route: 065
     Dates: start: 20130904, end: 20130904
  7. TRAMAL [Concomitant]
     Active Substance: TRAMADOL
     Indication: ANALGESIC THERAPY
     Route: 065
     Dates: start: 20130904, end: 20130904
  8. SUPRANE [Suspect]
     Active Substance: DESFLURANE
     Indication: SURGERY
     Route: 055
     Dates: start: 20130904, end: 20130904
  9. EPHEDRINE. [Concomitant]
     Active Substance: EPHEDRINE
     Indication: PROPHYLAXIS
     Route: 065
     Dates: start: 20130904, end: 20130904
  10. ROPION [Concomitant]
     Active Substance: FLURBIPROFEN AXETIL
     Indication: ANALGESIC THERAPY
     Route: 065
     Dates: start: 20130904, end: 20130904
  11. BRIDION [Concomitant]
     Active Substance: SUGAMMADEX
     Indication: ANAESTHESIA REVERSAL
     Route: 065
     Dates: start: 20130904, end: 20130904
  12. CEFAZOLIN [Concomitant]
     Active Substance: CEFAZOLIN
     Indication: PROPHYLAXIS
     Route: 065
     Dates: start: 20130904, end: 20130904

REACTIONS (1)
  - Hypoventilation [Recovered/Resolved]

NARRATIVE: CASE EVENT DATE: 20130904
